FAERS Safety Report 14057225 (Version 1)
Quarter: 2017Q4

REPORT INFORMATION
  Report Type: Spontaneous
  Country: FR (occurrence: FR)
  Receive Date: 20171006
  Receipt Date: 20171006
  Transmission Date: 20180321
  Serious: Yes (Congenital Anomaly)
  Sender: FDA-Public Use
  Company Number: FR-ABBVIE-17P-056-2121156-00

PATIENT
  Sex: Female

DRUGS (2)
  1. DEPAKINE [Suspect]
     Active Substance: VALPROATE SODIUM
     Indication: MATERNAL EXPOSURE TIMING UNSPECIFIED
     Route: 064
  2. EPITOMAX (TOPIRAMATE) [Suspect]
     Active Substance: TOPIRAMATE
     Indication: MATERNAL EXPOSURE TIMING UNSPECIFIED
     Route: 064

REACTIONS (6)
  - Language disorder [Unknown]
  - Growth retardation [Not Recovered/Not Resolved]
  - Foetal exposure during pregnancy [Unknown]
  - Autism spectrum disorder [Unknown]
  - Communication disorder [Unknown]
  - Neurodevelopmental disorder [Not Recovered/Not Resolved]
